FAERS Safety Report 10494519 (Version 2)
Quarter: 2014Q4

REPORT INFORMATION
  Report Type: Spontaneous
  Country: US (occurrence: US)
  Receive Date: 20141003
  Receipt Date: 20141015
  Transmission Date: 20150528
  Serious: Yes (Other)
  Sender: FDA-Public Use
  Company Number: US-LEO PHARMA-229872

PATIENT
  Age: 58 Year
  Sex: Female

DRUGS (1)
  1. PICATO [Suspect]
     Active Substance: INGENOL MEBUTATE
     Indication: ACTINIC KERATOSIS
     Route: 061
     Dates: start: 20140923, end: 20140924

REACTIONS (11)
  - Tongue discolouration [Recovered/Resolved]
  - Throat irritation [Recovered/Resolved]
  - Swollen tongue [Recovered/Resolved]
  - Headache [Recovered/Resolved]
  - Skin warm [Recovering/Resolving]
  - Dysgeusia [Recovered/Resolved]
  - Pharyngeal erythema [Recovering/Resolving]
  - Drug administered at inappropriate site [Recovering/Resolving]
  - Hypersensitivity [Recovered/Resolved]
  - Application site pain [Recovering/Resolving]
  - Dysphagia [Recovered/Resolved]

NARRATIVE: CASE EVENT DATE: 20140923
